FAERS Safety Report 19827648 (Version 1)
Quarter: 2021Q3

REPORT INFORMATION
  Report Type: Report from Study
  Country: CA (occurrence: CA)
  Receive Date: 20210914
  Receipt Date: 20210914
  Transmission Date: 20211014
  Serious: Yes (Hospitalization)
  Sender: FDA-Public Use
  Company Number: CA-JNJFOC-20210904570

PATIENT
  Age: 69 Year
  Sex: Female

DRUGS (2)
  1. COVID?19 VACCINE NOS. [Suspect]
     Active Substance: COVID-19 VACCINE NOS
     Indication: COVID-19 PROPHYLAXIS
     Route: 065
  2. REMICADE [Suspect]
     Active Substance: INFLIXIMAB
     Indication: RHEUMATOID ARTHRITIS
     Route: 042
     Dates: start: 20090401

REACTIONS (7)
  - Influenza [Unknown]
  - Balance disorder [Unknown]
  - Speech disorder [Unknown]
  - Urinary tract infection [Unknown]
  - Incontinence [Unknown]
  - Arthritis [Unknown]
  - Pyrexia [Unknown]

NARRATIVE: CASE EVENT DATE: 202108
